FAERS Safety Report 5521791-2 (Version None)
Quarter: 2007Q4

REPORT INFORMATION
  Report Type: 
  Country: None (occurrence: None)
  Receive Date: 20071120
  Receipt Date: 20071112
  Transmission Date: 20080405
  Serious: Yes (Disabling, Other)
  Sender: FDA-Public Use
  Company Number: DE-NOVOPROD-268556

PATIENT
  Sex: Female
  Weight: 37 kg

DRUGS (2)
  1. NORDITROPIN [Suspect]
     Indication: GROWTH HORMONE DEFICIENCY
     Dosage: 1 MG, QD
     Route: 058
     Dates: start: 20041008
  2. NORDITROPIN [Suspect]
     Indication: GROWTH RETARDATION

REACTIONS (1)
  - SCOLIOSIS [None]
